FAERS Safety Report 4908628-7 (Version None)
Quarter: 2006Q1

REPORT INFORMATION
  Report Type: 
  Country: None (occurrence: None)
  Receive Date: 20060210
  Receipt Date: 20050920
  Transmission Date: 20060701
  Serious: No
  Sender: FDA-Public Use
  Company Number: US-GLAXOSMITHKLINE-A0575261A

PATIENT
  Sex: Female

DRUGS (1)
  1. PAXIL CR [Suspect]
     Indication: POSTPARTUM DISORDER
     Dosage: 50MG UNKNOWN
     Route: 048

REACTIONS (1)
  - WEIGHT INCREASED [None]
